FAERS Safety Report 8206875 (Version 5)
Quarter: 2013Q1

REPORT INFORMATION
  Report Type: Spontaneous
  Country: US (occurrence: US)
  Receive Date: 20111028
  Receipt Date: 20130306
  Transmission Date: 20140127
  Serious: No
  Sender: FDA-Public Use
  Company Number: US-GLAXOSMITHKLINE-A0912059A

PATIENT
  Age: 61 Year
  Sex: Female
  Weight: 62.7 kg

DRUGS (6)
  1. ADVAIR [Suspect]
     Indication: ASTHMA
     Route: 065
     Dates: start: 2007, end: 20110120
  2. ADVAIR [Suspect]
     Indication: ASTHMA
     Route: 065
     Dates: start: 20110125, end: 201101
  3. COMBIVENT [Suspect]
     Dosage: 2PUFF TWICE PER DAY
     Route: 055
  4. FLOVENT [Suspect]
     Indication: PRODUCT USED FOR UNKNOWN INDICATION
     Route: 065
  5. ANTIBIOTIC [Concomitant]
     Indication: BRONCHITIS
  6. STEROID [Concomitant]
     Indication: BRONCHITIS

REACTIONS (11)
  - Cataract [Not Recovered/Not Resolved]
  - Tremor [Unknown]
  - Bronchial disorder [Unknown]
  - Condition aggravated [Unknown]
  - Nervousness [Unknown]
  - Psychomotor hyperactivity [Unknown]
  - Arthralgia [Unknown]
  - Bone pain [Unknown]
  - Dyspnoea [Unknown]
  - Adverse event [Unknown]
  - Product quality issue [Unknown]
